FAERS Safety Report 10652361 (Version 3)
Quarter: 2015Q1

REPORT INFORMATION
  Report Type: Report from Study
  Country: DE (occurrence: DE)
  Receive Date: 20141215
  Receipt Date: 20150206
  Transmission Date: 20150720
  Serious: Yes (Hospitalization)
  Sender: FDA-Public Use
  Company Number: DE-AMGEN-DEUCT2014096313

PATIENT
  Age: 66 Year
  Sex: Female
  Weight: 72 kg

DRUGS (3)
  1. CARBOPLATIN. [Concomitant]
     Active Substance: CARBOPLATIN
     Indication: OVARIAN CANCER RECURRENT
     Dosage: UNK
     Route: 042
     Dates: start: 20141029
  2. PANITUMUMAB [Suspect]
     Active Substance: PANITUMUMAB
     Indication: OVARIAN CANCER RECURRENT
     Dosage: 6 MG/KG, UNK
     Route: 042
     Dates: start: 20141029, end: 20141127
  3. PEGYLATED LIPOSOMAL DOXORUBICIN HYDROCHLORIDE [Concomitant]
     Active Substance: DOXORUBICIN HYDROCHLORIDE
     Indication: OVARIAN CANCER RECURRENT
     Dosage: 30 MG/M2, UNK
     Route: 042
     Dates: start: 20141029

REACTIONS (1)
  - Ileal fistula [Recovered/Resolved]

NARRATIVE: CASE EVENT DATE: 20141208
